FAERS Safety Report 4821034-9 (Version None)
Quarter: 2005Q4

REPORT INFORMATION
  Report Type: 
  Country: None (occurrence: None)
  Receive Date: 20051104
  Receipt Date: 20051024
  Transmission Date: 20060501
  Serious: Yes (Life-Threatening, Hospitalization)
  Sender: FDA-Public Use
  Company Number: US-SANOFI-SYNTHELABO-F01200502234

PATIENT
  Sex: Male

DRUGS (8)
  1. OXALIPLATIN [Suspect]
     Indication: COLON CANCER
     Dates: start: 20050824
  2. CAPECITABINE [Suspect]
     Indication: COLON CANCER
     Route: 048
     Dates: start: 20050831, end: 20050831
  3. BEVACIZUMAB [Suspect]
     Indication: COLON CANCER
     Route: 042
  4. PREDNISONE [Concomitant]
  5. AMLODIPINE BESYLATE [Concomitant]
  6. OXYCODONE AND ACETAMINOPHEN [Concomitant]
  7. ZOLPIDEM TARTRATE [Concomitant]
  8. IRON [Concomitant]

REACTIONS (4)
  - ARTHRITIS [None]
  - BLOOD GLUCOSE INCREASED [None]
  - CELLULITIS [None]
  - RED BLOOD CELL COUNT DECREASED [None]
